FAERS Safety Report 8095976-8 (Version None)
Quarter: 2012Q1

REPORT INFORMATION
  Report Type: 
  Country: None (occurrence: None)
  Receive Date: 20120126
  Receipt Date: 20120114
  Transmission Date: 20120608
  Serious: Yes (Hospitalization)
  Sender: FDA-Public Use
  Company Number: 2012AP000122

PATIENT
  Age: 36 Year
  Sex: Female

DRUGS (3)
  1. OLANZAPINE [Suspect]
     Indication: MANIA
     Dosage: 10 MG;QD
  2. DIVALPROEX SODIUM [Suspect]
     Indication: MANIA
     Dosage: 1500 MG;QD
  3. DIAZEPAM [Suspect]
     Indication: AGITATION
     Dosage: 30 MG;QD

REACTIONS (4)
  - DRUG LEVEL DECREASED [None]
  - COMA [None]
  - DRUG INTERACTION [None]
  - ENCEPHALOPATHY [None]
